FAERS Safety Report 10553067 (Version 2)
Quarter: 2014Q4

REPORT INFORMATION
  Report Type: Spontaneous
  Country: JP (occurrence: JP)
  Receive Date: 20141029
  Receipt Date: 20141031
  Transmission Date: 20150529
  Serious: Yes (Hospitalization)
  Sender: FDA-Public Use
  Company Number: JP-009507513-1410JPN013926

PATIENT
  Age: 30 Year
  Sex: Male

DRUGS (2)
  1. TRYPTANOL [Suspect]
     Active Substance: AMITRIPTYLINE
     Indication: ABDOMINAL PAIN LOWER
     Dosage: TOOK DOUBLE THE DOSE OF HIS PRESCRIPTION
     Route: 048
  2. FENTANYL. [Interacting]
     Active Substance: FENTANYL
     Indication: ABDOMINAL PAIN LOWER
     Dosage: 16.8 MG, QD
     Route: 062

REACTIONS (2)
  - Toxicity to various agents [Recovered/Resolved]
  - Drug interaction [Recovered/Resolved]
